FAERS Safety Report 19483268 (Version 1)
Quarter: 2021Q3

REPORT INFORMATION
  Report Type: Report from Study
  Country: US (occurrence: US)
  Receive Date: 20210701
  Receipt Date: 20210701
  Transmission Date: 20211014
  Serious: Yes (Hospitalization)
  Sender: FDA-Public Use
  Company Number: US-EXELIXIS-CABO-21041919

PATIENT
  Sex: Male
  Weight: 104.3 kg

DRUGS (4)
  1. CBD OIL [Concomitant]
     Active Substance: CANNABIDIOL\HERBALS
  2. AFINITOR [Concomitant]
     Active Substance: EVEROLIMUS
  3. CABOMETYX [Suspect]
     Active Substance: CABOZANTINIB S-MALATE
     Indication: RENAL CELL CARCINOMA
     Dosage: 1?20 MG QD ALTERNATING WITH 1?40 MG QD
     Route: 048
     Dates: start: 20190412
  4. LENVIMA [Concomitant]
     Active Substance: LENVATINIB

REACTIONS (3)
  - Infection [Unknown]
  - Arthralgia [Unknown]
  - Hepatic neoplasm [Unknown]
